FAERS Safety Report 15319153 (Version 1)
Quarter: 2018Q3

REPORT INFORMATION
  Report Type: Spontaneous
  Country: US (occurrence: US)
  Receive Date: 20180820
  Receipt Date: 20180820
  Transmission Date: 20181010
  Serious: Yes (Hospitalization)
  Sender: FDA-Public Use
  Company Number: None

PATIENT
  Age: 70 Year
  Sex: Female

DRUGS (6)
  1. SUTENT [Suspect]
     Active Substance: SUNITINIB MALATE
     Indication: RENAL CANCER
     Dosage: MG DAYS 1,8, ... PO
     Route: 048
     Dates: start: 20180723
  2. REMICADE [Concomitant]
     Active Substance: INFLIXIMAB
  3. PREDNISONE. [Concomitant]
     Active Substance: PREDNISONE
  4. ATENOLOL. [Concomitant]
     Active Substance: ATENOLOL
  5. LOSARTAN. [Concomitant]
     Active Substance: LOSARTAN
  6. SYNTHROID [Concomitant]
     Active Substance: LEVOTHYROXINE SODIUM

REACTIONS (5)
  - Vomiting [None]
  - Abdominal pain [None]
  - Colitis [None]
  - Dehydration [None]
  - Fatigue [None]
